FAERS Safety Report 23879728 (Version 1)
Quarter: 2024Q2

REPORT INFORMATION
  Report Type: Spontaneous
  Country: US (occurrence: None)
  Receive Date: 20240520
  Receipt Date: 20240520
  Transmission Date: 20240715
  Serious: Yes (Death, Life-Threatening, Hospitalization, Disabling, Congenital Anomaly)
  Sender: FDA-Public Use
  Company Number: None

PATIENT
  Age: 93 Year
  Sex: Male
  Weight: 81.65 kg

DRUGS (3)
  1. HALDOL [Suspect]
     Active Substance: HALOPERIDOL
     Dates: start: 20240404, end: 20240404
  2. Eliquise [Concomitant]
  3. heart pill [Concomitant]

REACTIONS (2)
  - Dyspnoea [None]
  - Personality change [None]

NARRATIVE: CASE EVENT DATE: 20240404
